FAERS Safety Report 7712896-6 (Version None)
Quarter: 2011Q3

REPORT INFORMATION
  Report Type: 
  Country: None (occurrence: None)
  Receive Date: 20110826
  Receipt Date: 20110815
  Transmission Date: 20111222
  Serious: Yes (Other)
  Sender: FDA-Public Use
  Company Number: PHHY2011CA63914

PATIENT
  Age: 11 Year
  Sex: Female

DRUGS (2)
  1. EXJADE [Suspect]
     Indication: IRON OVERLOAD
     Dosage: 500 MG,DAILY
     Route: 048
     Dates: start: 20080801, end: 20110601
  2. VITAMIN D [Concomitant]
     Dosage: 1000 MG, DAILY

REACTIONS (3)
  - OTOTOXICITY [None]
  - HYPOACUSIS [None]
  - THALASSAEMIA BETA [None]
